FAERS Safety Report 17511987 (Version 1)
Quarter: 2020Q1

REPORT INFORMATION
  Report Type: Spontaneous
  Country: US (occurrence: US)
  Receive Date: 20200307
  Receipt Date: 20200307
  Transmission Date: 20200409
  Serious: No
  Sender: FDA-Public Use
  Company Number: US-TEVA-2020-US-1195588

PATIENT
  Sex: Female

DRUGS (2)
  1. OXYCODONE [Interacting]
     Active Substance: OXYCODONE
     Route: 065
     Dates: start: 20200225
  2. BUPRENORPHINE. [Suspect]
     Active Substance: BUPRENORPHINE
     Route: 065
     Dates: start: 202002

REACTIONS (6)
  - Drug interaction [Unknown]
  - Pain in extremity [Not Recovered/Not Resolved]
  - Abdominal pain upper [Not Recovered/Not Resolved]
  - Glassy eyes [Unknown]
  - Incorrect route of product administration [Unknown]
  - Diarrhoea [Unknown]

NARRATIVE: CASE EVENT DATE: 202002
